FAERS Safety Report 21227346 (Version 1)
Quarter: 2022Q3

REPORT INFORMATION
  Report Type: Spontaneous
  Country: CA (occurrence: CA)
  Receive Date: 20220818
  Receipt Date: 20220818
  Transmission Date: 20221027
  Serious: Yes (Death)
  Sender: FDA-Public Use
  Company Number: CA-PFIZER INC-202100997963

PATIENT
  Age: 47 Year
  Sex: Female

DRUGS (9)
  1. IBRANCE [Suspect]
     Active Substance: PALBOCICLIB
     Dosage: 125 MG FOR 21 DAYS, THEN 7 DAYS OFF
     Dates: start: 20210804
  2. IBRANCE [Suspect]
     Active Substance: PALBOCICLIB
     Dosage: 125 MG FOR 21 DAYS, THEN 7 DAYS OFF
     Dates: start: 20210902
  3. ZOLADEX [Concomitant]
     Active Substance: GOSERELIN ACETATE
  4. LETROZOLE [Concomitant]
     Active Substance: LETROZOLE
  5. SYNTHROID [Concomitant]
     Active Substance: LEVOTHYROXINE SODIUM
  6. ACETAMINOPHEN [Concomitant]
     Active Substance: ACETAMINOPHEN
  7. ZOPICLONE [Concomitant]
     Active Substance: ZOPICLONE
  8. VITAMINS [Concomitant]
     Active Substance: VITAMINS
  9. CHOLECALCIFEROL [Concomitant]
     Active Substance: CHOLECALCIFEROL

REACTIONS (1)
  - Death [Fatal]

NARRATIVE: CASE EVENT DATE: 20220426
